FAERS Safety Report 7296118-9 (Version None)
Quarter: 2011Q1

REPORT INFORMATION
  Report Type: 
  Country: None (occurrence: None)
  Receive Date: 20110216
  Receipt Date: 20110207
  Transmission Date: 20110831
  Serious: Yes (Hospitalization)
  Sender: FDA-Public Use
  Company Number: CO-ROCHE-758215

PATIENT
  Sex: Female

DRUGS (2)
  1. TRASTUZUMAB [Suspect]
     Indication: BREAST CANCER
     Dosage: THE LAST INFUSION WAS 17-JAN-2011.
     Route: 042
     Dates: start: 20090315
  2. ENOXAPARIN SODIUM [Concomitant]
     Indication: ANTICOAGULANT THERAPY
     Dosage: FREQUENCY: QD
     Route: 058
     Dates: start: 20090101

REACTIONS (1)
  - DEEP VEIN THROMBOSIS [None]
